FAERS Safety Report 8556331-7 (Version None)
Quarter: 2012Q2

REPORT INFORMATION
  Report Type: 
  Country: None (occurrence: None)
  Receive Date: 20120418
  Receipt Date: 20090625
  Transmission Date: 20120825
  Serious: Yes (Hospitalization)
  Sender: FDA-Public Use
  Company Number: PHEH2009US06690

PATIENT
  Age: 3 Year
  Sex: Female

DRUGS (16)
  1. VIOKASE 16 [Concomitant]
  2. SIMETHICONE (SIMETICONE) [Concomitant]
  3. ADVAIR HFA [Concomitant]
  4. MIRALAX [Concomitant]
  5. EUCERIN CREME (PARAFFIN, LIQUID, PETROLATUM, WOOL FAT) [Concomitant]
  6. FLONASE [Concomitant]
  7. LORATADINE [Concomitant]
  8. MONTELUKAST [Concomitant]
  9. TRIAMCINOLONE [Concomitant]
  10. EES (ERYTHROMYCIN ETHYLSUCCINATE) [Concomitant]
  11. ELIDEL [Suspect]
     Indication: DERMATITIS
     Dosage: TOPICAL
     Route: 061
  12. HYDROXYZINE [Concomitant]
  13. PARENTERAL NUTRITION (PARENTERAL NUTRITION) [Concomitant]
  14. LANSOPRAZOLE [Concomitant]
  15. LEVALBUTEROL HYDROCHLORIDE (LEVOSALBUTAMOL HYDROCHLORIDE) [Concomitant]
  16. SENOKOT /USA/ (SENNA, SENNA ALEXANDRINA) [Concomitant]

REACTIONS (1)
  - PYREXIA [None]
